FAERS Safety Report 6543148-8 (Version None)
Quarter: 2010Q1

REPORT INFORMATION
  Report Type: 
  Country: None (occurrence: None)
  Receive Date: 20100120
  Receipt Date: 20100111
  Transmission Date: 20100710
  Serious: Yes (Other)
  Sender: FDA-Public Use
  Company Number: IT-AMGEN-US385230

PATIENT
  Sex: Female

DRUGS (5)
  1. ENBREL [Suspect]
     Indication: RHEUMATOID ARTHRITIS
     Route: 058
     Dates: start: 20090414, end: 20091016
  2. MEDROL [Concomitant]
     Dosage: 4MG
     Route: 048
     Dates: start: 20051101
  3. ASPIRIN [Concomitant]
     Dosage: 75MG
     Route: 048
     Dates: start: 20051101
  4. METHOTREXATE [Concomitant]
     Dosage: 10MG
     Route: 030
     Dates: start: 20051101
  5. FOLINA [Concomitant]
     Dosage: 5MG
     Route: 048
     Dates: start: 20051101

REACTIONS (1)
  - OPTIC NEUROPATHY [None]
